FAERS Safety Report 9858912 (Version 1)
Quarter: 2014Q1

REPORT INFORMATION
  Report Type: Spontaneous
  Country: US (occurrence: US)
  Receive Date: 20140131
  Receipt Date: 20140131
  Transmission Date: 20141002
  Serious: Yes (Death)
  Sender: FDA-Public Use
  Company Number: CHPA2014US001763

PATIENT
  Age: 50 Year
  Sex: Female

DRUGS (5)
  1. TERMALGIN [Suspect]
     Route: 048
  2. CLONIDINE [Suspect]
     Route: 048
  3. TRAMADOL [Suspect]
     Route: 048
  4. TEMAZEPAM [Suspect]
     Route: 048
  5. HYDROCHLOROTHIAZIDE [Suspect]
     Route: 048

REACTIONS (1)
  - Completed suicide [Fatal]
